FAERS Safety Report 22298877 (Version 1)
Quarter: 2023Q2

REPORT INFORMATION
  Report Type: Spontaneous
  Country: US (occurrence: None)
  Receive Date: 20230508
  Receipt Date: 20230508
  Transmission Date: 20230722
  Serious: Yes (Hospitalization)
  Sender: FDA-Public Use
  Company Number: None

PATIENT
  Age: 51 Year
  Sex: Female

DRUGS (2)
  1. DEVICE [Suspect]
     Active Substance: DEVICE
  2. REMODULIN [Concomitant]
     Dosage: FREQUENCY : DAILY;?
     Route: 042
     Dates: start: 202207

REACTIONS (4)
  - Vascular device infection [None]
  - Injection site erythema [None]
  - Catheter site infection [None]
  - Device connection issue [None]

NARRATIVE: CASE EVENT DATE: 20230507
